FAERS Safety Report 18793450 (Version 1)
Quarter: 2021Q1

REPORT INFORMATION
  Report Type: Spontaneous
  Country: US (occurrence: US)
  Receive Date: 20210126
  Receipt Date: 20210126
  Transmission Date: 20210419
  Serious: Yes (Other)
  Sender: FDA-Public Use
  Company Number: None

PATIENT
  Age: 26 Year
  Sex: Female
  Weight: 76.5 kg

DRUGS (2)
  1. PROBIOTICS [Concomitant]
     Active Substance: PROBIOTICS NOS
  2. TRI?SPRINTEC [Suspect]
     Active Substance: ETHINYL ESTRADIOL\NORGESTIMATE
     Indication: CYST
     Dosage: ?          QUANTITY:84 TABLET(S);?
     Route: 048

REACTIONS (3)
  - Pain in extremity [None]
  - Thrombosis [None]
  - Pulmonary thrombosis [None]

NARRATIVE: CASE EVENT DATE: 20210108
